FAERS Safety Report 6833858-7 (Version None)
Quarter: 2010Q3

REPORT INFORMATION
  Report Type: 
  Country: None (occurrence: None)
  Receive Date: 20100712
  Receipt Date: 20070404
  Transmission Date: 20110219
  Serious: No
  Sender: FDA-Public Use
  Company Number: US-PFIZER INC-2007027574

PATIENT
  Sex: Male
  Weight: 90.72 kg

DRUGS (7)
  1. CHANTIX [Suspect]
     Indication: SMOKING CESSATION THERAPY
     Dates: start: 20070321
  2. GLUCOPHAGE [Concomitant]
     Indication: DIABETES MELLITUS
  3. NOVOLIN N [Concomitant]
     Indication: DIABETES MELLITUS
  4. NOVOLIN 70/30 [Concomitant]
     Indication: DIABETES MELLITUS
  5. ACCUPRIL [Concomitant]
  6. LOVASTATIN [Concomitant]
     Indication: BLOOD CHOLESTEROL INCREASED
  7. ELAVIL [Concomitant]

REACTIONS (2)
  - BACK PAIN [None]
  - POOR QUALITY SLEEP [None]
